FAERS Safety Report 5680425-7 (Version None)
Quarter: 2008Q1

REPORT INFORMATION
  Report Type: 
  Country: None (occurrence: None)
  Receive Date: 20080326
  Receipt Date: 20080312
  Transmission Date: 20080703
  Serious: Yes (Death, Hospitalization, Congenital Anomaly)
  Sender: FDA-Public Use
  Company Number: A0680194A

PATIENT
  Sex: Female
  Weight: 3.2 kg

DRUGS (2)
  1. PAXIL [Suspect]
     Indication: DEPRESSION
     Dates: start: 20020716, end: 20030220
  2. VITAMIN TAB [Concomitant]

REACTIONS (29)
  - ATRIAL SEPTAL DEFECT [None]
  - CARDIO-RESPIRATORY ARREST [None]
  - CEREBRAL HAEMORRHAGE [None]
  - CEREBRAL INFARCTION [None]
  - CHEST X-RAY ABNORMAL [None]
  - DILATATION VENTRICULAR [None]
  - DRUG EXPOSURE DURING PREGNANCY [None]
  - GENERALISED OEDEMA [None]
  - HEART RATE DECREASED [None]
  - HEPATOMEGALY [None]
  - HYPOTENSION [None]
  - LUNG DISORDER [None]
  - MARROW HYPERPLASIA [None]
  - MYOCARDIAL HAEMORRHAGE [None]
  - OESOPHAGEAL ULCER [None]
  - OXYGEN SATURATION DECREASED [None]
  - PATENT DUCTUS ARTERIOSUS [None]
  - PERSISTENT FOETAL CIRCULATION [None]
  - PNEUMONIA [None]
  - PNEUMONITIS [None]
  - PREMATURE BABY [None]
  - PULMONARY CONGESTION [None]
  - PULMONARY OEDEMA [None]
  - PULMONARY VASCULAR DISORDER [None]
  - RENAL NECROSIS [None]
  - RESPIRATORY DISTRESS [None]
  - RESPIRATORY FAILURE [None]
  - SEPSIS [None]
  - THYMUS DISORDER [None]
